FAERS Safety Report 13014949 (Version 1)
Quarter: 2016Q4

REPORT INFORMATION
  Report Type: Report from Study
  Country: US (occurrence: US)
  Receive Date: 20161210
  Receipt Date: 20161210
  Transmission Date: 20170207
  Serious: Yes (Hospitalization)
  Sender: FDA-Public Use
  Company Number: US-ASTRAZENECA-2016SF29029

PATIENT
  Age: 772 Month
  Sex: Female
  Weight: 81.6 kg

DRUGS (7)
  1. PRILOSEC [Suspect]
     Active Substance: OMEPRAZOLE MAGNESIUM
     Indication: GASTROOESOPHAGEAL REFLUX DISEASE
     Route: 048
  2. VITAMIN C [Concomitant]
     Active Substance: ASCORBIC ACID
     Route: 048
  3. PRILOSEC [Suspect]
     Active Substance: OMEPRAZOLE MAGNESIUM
     Indication: GASTROOESOPHAGEAL REFLUX DISEASE
     Dosage: GENERIC, 40 MG DAILY
     Route: 048
  4. NEXIUM [Suspect]
     Active Substance: ESOMEPRAZOLE MAGNESIUM
     Indication: GASTROOESOPHAGEAL REFLUX DISEASE
     Route: 048
     Dates: end: 201605
  5. HIGH BLOOD PRESSURE MEDICINE [Concomitant]
     Indication: HYPERTENSION
     Dosage: DAILY
     Route: 048
  6. VITAMIN E [Concomitant]
     Active Substance: .ALPHA.-TOCOPHEROL
     Route: 048
  7. VITAMIN D [Concomitant]
     Active Substance: CHOLECALCIFEROL
     Route: 048

REACTIONS (7)
  - Cardiac disorder [Unknown]
  - Intentional product misuse [Unknown]
  - Off label use [Recovered/Resolved]
  - Gastrooesophageal reflux disease [Unknown]
  - Product use issue [Recovered/Resolved]
  - Dyspepsia [Unknown]
  - Product substitution issue [Unknown]

NARRATIVE: CASE EVENT DATE: 201611
